FAERS Safety Report 25595460 (Version 1)
Quarter: 2025Q3

REPORT INFORMATION
  Report Type: Report from Study
  Country: US (occurrence: US)
  Receive Date: 20250723
  Receipt Date: 20250723
  Transmission Date: 20251020
  Serious: Yes (Other)
  Sender: NOVARTIS
  Company Number: US-002147023-NVSC2025US097387

PATIENT
  Sex: Female
  Weight: 63.787 kg

DRUGS (1)
  1. PROMACTA [Suspect]
     Active Substance: ELTROMBOPAG OLAMINE
     Indication: Pancytopenia
     Dosage: 50 MG, QD
     Route: 048

REACTIONS (6)
  - Cataract [Unknown]
  - General physical health deterioration [Unknown]
  - Alopecia [Unknown]
  - Headache [Unknown]
  - Insomnia [Unknown]
  - Product use in unapproved indication [Unknown]
